FAERS Safety Report 6756311-8 (Version None)
Quarter: 2010Q2

REPORT INFORMATION
  Report Type: 
  Country: None (occurrence: None)
  Receive Date: 20100604
  Receipt Date: 20100519
  Transmission Date: 20101027
  Serious: Yes (Other)
  Sender: FDA-Public Use
  Company Number: PHHY2010US33010

PATIENT
  Age: 62 Year
  Sex: Female

DRUGS (1)
  1. LETROZOLE [Suspect]
     Dosage: UNK

REACTIONS (4)
  - COLECTOMY [None]
  - COLON CANCER [None]
  - LARGE INTESTINAL ULCER [None]
  - RESECTION OF RECTUM [None]
